FAERS Safety Report 11212525 (Version 1)
Quarter: 2015Q2

REPORT INFORMATION
  Report Type: Spontaneous
  Country: US (occurrence: US)
  Receive Date: 20150623
  Receipt Date: 20150623
  Transmission Date: 20150821
  Serious: Yes (Hospitalization)
  Sender: FDA-Public Use
  Company Number: US-PFIZER INC-2015205126

PATIENT
  Age: 35 Year
  Sex: Male

DRUGS (1)
  1. DILANTIN [Suspect]
     Active Substance: PHENYTOIN
     Dosage: 300 MG, 1X/DAY

REACTIONS (6)
  - Seizure [Unknown]
  - Dyspnoea [Unknown]
  - Blood pressure abnormal [Unknown]
  - General physical health deterioration [Unknown]
  - Gait disturbance [Unknown]
  - Activities of daily living impaired [Unknown]
